FAERS Safety Report 7759725-2 (Version None)
Quarter: 2011Q3

REPORT INFORMATION
  Report Type: 
  Country: None (occurrence: None)
  Receive Date: 20110915
  Receipt Date: 20110908
  Transmission Date: 20111222
  Serious: Yes (Hospitalization, Congenital Anomaly)
  Sender: FDA-Public Use
  Company Number: 2011SP042627

PATIENT
  Sex: Female

DRUGS (3)
  1. TEMODAL [Suspect]
     Indication: MATERNAL EXPOSURE DURING PREGNANCY
     Dosage: TRPL
     Route: 064
  2. LEVRON (LEVETIRACETAM) (LEVOROPROPIZINE) [Suspect]
     Indication: MATERNAL EXPOSURE DURING PREGNANCY
     Dosage: TRPL
     Route: 064
  3. LUMINAL (PHENOBARBITAL) (PHENOBARBITAL) [Suspect]
     Indication: MATERNAL EXPOSURE DURING PREGNANCY
     Dosage: TRPL
     Route: 064

REACTIONS (4)
  - TALIPES [None]
  - MATERNAL DRUGS AFFECTING FOETUS [None]
  - DEVELOPMENTAL DELAY [None]
  - RESPIRATORY TRACT INFECTION [None]
